FAERS Safety Report 23654537 (Version 1)
Quarter: 2024Q1

REPORT INFORMATION
  Report Type: Spontaneous
  Country: US (occurrence: US)
  Receive Date: 20240320
  Receipt Date: 20240320
  Transmission Date: 20240410
  Serious: Yes (Hospitalization, Other)
  Sender: FDA-Public Use
  Company Number: US-SA-SAC20240318000209

PATIENT
  Sex: Male
  Weight: 172 kg

DRUGS (1)
  1. DUPIXENT [Suspect]
     Active Substance: DUPILUMAB
     Indication: Dermatitis atopic
     Dosage: 300 MG, QOW
     Route: 058
     Dates: end: 202311

REACTIONS (6)
  - Cellulitis [Recovering/Resolving]
  - Dermatitis [Unknown]
  - Condition aggravated [Unknown]
  - Temperature intolerance [Unknown]
  - Eczema [Not Recovered/Not Resolved]
  - Scar [Unknown]
